FAERS Safety Report 13339467 (Version 1)
Quarter: 2017Q1

REPORT INFORMATION
  Report Type: Spontaneous
  Country: CN (occurrence: CN)
  Receive Date: 20170315
  Receipt Date: 20170315
  Transmission Date: 20170428
  Serious: No
  Sender: FDA-Public Use
  Company Number: CN-ARALEZ PHARMACEUTICALS RD INC.-ARA-TP-CN-2017-128

PATIENT
  Age: 70 Year
  Sex: Female

DRUGS (3)
  1. METOPROLOL SUCCINATE. [Suspect]
     Active Substance: METOPROLOL SUCCINATE
     Indication: ARRHYTHMIA
     Dosage: SMALL DOSE
  2. BETALOC [Suspect]
     Active Substance: METOPROLOL TARTRATE
     Indication: ARRHYTHMIA
  3. EUTHYROX [Concomitant]
     Active Substance: LEVOTHYROXINE SODIUM
     Indication: PRODUCT USED FOR UNKNOWN INDICATION

REACTIONS (3)
  - Product use issue [Unknown]
  - Off label use [Unknown]
  - Arrhythmia [Unknown]
